FAERS Safety Report 6163847-X (Version None)
Quarter: 2009Q2

REPORT INFORMATION
  Report Type: 
  Country: None (occurrence: None)
  Receive Date: 20090420
  Receipt Date: 20090408
  Transmission Date: 20091009
  Serious: Yes (Death)
  Sender: FDA-Public Use
  Company Number: GXKR2009DK04507

PATIENT
  Age: 37 Year
  Sex: Female

DRUGS (1)
  1. THIAMAZOLE (NGX) (THIAMAZOLE) TABLET [Suspect]
     Indication: GOITRE
     Dosage: ORAL
     Route: 048
     Dates: start: 20070301, end: 20070501

REACTIONS (4)
  - AGRANULOCYTOSIS [None]
  - LEUKOPENIA [None]
  - MALAISE [None]
  - SEPSIS [None]
